FAERS Safety Report 13388866 (Version 1)
Quarter: 2017Q1

REPORT INFORMATION
  Report Type: Spontaneous
  Country: US (occurrence: US)
  Receive Date: 20170331
  Receipt Date: 20170331
  Transmission Date: 20170429
  Serious: Yes (Other)
  Sender: FDA-Public Use
  Company Number: US-ROCHE-1913876

PATIENT
  Age: 25 Year
  Sex: Female

DRUGS (3)
  1. XOLAIR [Suspect]
     Active Substance: OMALIZUMAB
     Indication: CHRONIC SPONTANEOUS URTICARIA
     Dosage: 300 MG SUBCUTANEOUS INJECTION GIVEN MONTHLY ;ONGOING: NO
     Route: 058
     Dates: start: 20161129
  2. XOLAIR [Suspect]
     Active Substance: OMALIZUMAB
     Dosage: 300 MG SUBCUTANEOUS INJECTION GIVEN MONTHLY ;ONGOING: NO
     Route: 058
     Dates: start: 201702
  3. XOLAIR [Suspect]
     Active Substance: OMALIZUMAB
     Dosage: 300 MG SUBCUTANEOUS INJECTION GIVEN MONTHLY ;ONGOING: NO
     Route: 058

REACTIONS (2)
  - Tracheal oedema [Unknown]
  - Dyspnoea [Unknown]

NARRATIVE: CASE EVENT DATE: 201702
